FAERS Safety Report 18634616 (Version 1)
Quarter: 2020Q4

REPORT INFORMATION
  Report Type: Spontaneous
  Country: US (occurrence: US)
  Receive Date: 20201218
  Receipt Date: 20201218
  Transmission Date: 20210114
  Serious: Yes (Other)
  Sender: FDA-Public Use
  Company Number: None

PATIENT
  Sex: Female

DRUGS (1)
  1. WET ONES [Suspect]
     Active Substance: BENZETHONIUM CHLORIDE
     Route: 061

REACTIONS (2)
  - Nausea [None]
  - Product odour abnormal [None]
